FAERS Safety Report 14734426 (Version 10)
Quarter: 2018Q3

REPORT INFORMATION
  Report Type: Spontaneous
  Country: FR (occurrence: FR)
  Receive Date: 20180409
  Receipt Date: 20180828
  Transmission Date: 20181010
  Serious: Yes (Life-Threatening, Hospitalization, Other)
  Sender: FDA-Public Use
  Company Number: FR-PFIZER INC-2018141942

PATIENT
  Age: 26 Year
  Sex: Female
  Weight: 56 kg

DRUGS (16)
  1. PANTOPRAZOLE [Suspect]
     Active Substance: PANTOPRAZOLE
     Dosage: 120 MG, UNK
     Route: 065
     Dates: start: 20151120
  2. SOLIRIS [Suspect]
     Active Substance: ECULIZUMAB
     Indication: ATYPICAL HAEMOLYTIC URAEMIC SYNDROME
     Dosage: 900 MG, 1/WEEK
     Route: 042
     Dates: start: 20151015, end: 20151106
  3. ESIDREX [Suspect]
     Active Substance: HYDROCHLOROTHIAZIDE
     Dosage: UNK, BID
     Route: 048
     Dates: start: 20151016, end: 20151103
  4. ALPRAZOLAM. [Suspect]
     Active Substance: ALPRAZOLAM
     Dosage: UNK UNK, QD
     Route: 048
     Dates: start: 20151023, end: 20151105
  5. SOLIRIS [Suspect]
     Active Substance: ECULIZUMAB
     Dosage: UNK
     Route: 042
     Dates: start: 20151020, end: 20151020
  6. ESIDREX [Suspect]
     Active Substance: HYDROCHLOROTHIAZIDE
     Dosage: UNK
     Route: 048
     Dates: start: 20151114, end: 20151116
  7. SOLIRIS [Suspect]
     Active Substance: ECULIZUMAB
     Dosage: UNK
     Route: 042
     Dates: start: 20151022, end: 20151022
  8. SOLIRIS [Suspect]
     Active Substance: ECULIZUMAB
     Dosage: UNK
     Route: 042
     Dates: start: 20151029, end: 20151029
  9. SPECIAFOLDINE [Concomitant]
     Active Substance: FOLIC ACID
     Dosage: UNK
     Route: 065
  10. ROVAMYCIN [Suspect]
     Active Substance: SPIRAMYCIN
     Indication: INFECTION
     Dosage: UNK, 3X/DAY
     Route: 048
     Dates: start: 20151030, end: 20151104
  11. PANTOPRAZOLE [Suspect]
     Active Substance: PANTOPRAZOLE
     Dosage: 40 MG, QD
     Route: 042
     Dates: start: 20151101, end: 20151115
  12. ORACILLIN /00001802/ [Suspect]
     Active Substance: PENICILLIN V POTASSIUM
     Dosage: UNK
     Route: 048
     Dates: start: 20151120, end: 20151121
  13. SOLIRIS [Suspect]
     Active Substance: ECULIZUMAB
     Dosage: 900 MG, WEEKLY
     Route: 042
     Dates: start: 20151015, end: 20151106
  14. PANTOPRAZOLE [Suspect]
     Active Substance: PANTOPRAZOLE
     Dosage: 120 MG, UNK
     Route: 042
     Dates: start: 201509
  15. ORACILLIN /00001802/ [Suspect]
     Active Substance: PENICILLIN V POTASSIUM
     Indication: INFECTION
     Dosage: 2000000 IU, QD
     Route: 065
     Dates: start: 20151019, end: 20151105
  16. SOLIRIS [Suspect]
     Active Substance: ECULIZUMAB
     Dosage: UNK
     Route: 042
     Dates: start: 20151106

REACTIONS (27)
  - Petechiae [Recovering/Resolving]
  - Transaminases increased [Unknown]
  - Chest pain [Recovered/Resolved]
  - Infection [Unknown]
  - Device related infection [Unknown]
  - Drug reaction with eosinophilia and systemic symptoms [Recovering/Resolving]
  - Lung disorder [Unknown]
  - Skin burning sensation [Recovering/Resolving]
  - Cell death [Recovering/Resolving]
  - Cough [Recovered/Resolved]
  - Mitral valve incompetence [Unknown]
  - Hepatocellular injury [Unknown]
  - Burning sensation [Recovered/Resolved]
  - Dyspnoea [Unknown]
  - Cholestasis [Recovering/Resolving]
  - Lung infection [Unknown]
  - Inappropriate schedule of drug administration [Unknown]
  - Oesophagitis [Unknown]
  - Eosinophilia [Recovering/Resolving]
  - Pancreatic disorder [Unknown]
  - Drug eruption [Unknown]
  - Skin disorder [Recovering/Resolving]
  - Haemoptysis [Recovered/Resolved]
  - Serum ferritin abnormal [Unknown]
  - Acute kidney injury [Unknown]
  - Pyrexia [Recovered/Resolved]
  - Tricuspid valve disease [Unknown]

NARRATIVE: CASE EVENT DATE: 20151015
